FAERS Safety Report 15676294 (Version 1)
Quarter: 2018Q4

REPORT INFORMATION
  Report Type: Spontaneous
  Country: US (occurrence: US)
  Receive Date: 20181120
  Receipt Date: 20181120
  Transmission Date: 20190205
  Serious: No
  Sender: FDA-Public Use
  Company Number: None

PATIENT
  Age: 78 Year
  Sex: Female

DRUGS (1)
  1. CAPECITABINE TAB 500MG [Suspect]
     Active Substance: CAPECITABINE
     Dosage: ?          OTHER FREQUENCY:OTHER;?
     Route: 048
     Dates: start: 201808

REACTIONS (5)
  - Skin discolouration [None]
  - Tenderness [None]
  - Rash [None]
  - Oral pain [None]
  - Skin exfoliation [None]

NARRATIVE: CASE EVENT DATE: 20181119
